FAERS Safety Report 7659167-4 (Version None)
Quarter: 2011Q3

REPORT INFORMATION
  Report Type: 
  Country: None (occurrence: None)
  Receive Date: 20110805
  Receipt Date: 20110728
  Transmission Date: 20111222
  Serious: Yes (Hospitalization)
  Sender: FDA-Public Use
  Company Number: CZ-GLAXOSMITHKLINE-B0737050A

PATIENT
  Sex: Female

DRUGS (5)
  1. RITUXIMAB [Suspect]
     Indication: CHRONIC LYMPHOCYTIC LEUKAEMIA
     Dosage: 919MG MONTHLY
     Route: 042
     Dates: start: 20110106
  2. ANOPYRIN [Concomitant]
     Dates: start: 20101120, end: 20110307
  3. CHLORAMBUCIL [Suspect]
     Indication: CHRONIC LYMPHOCYTIC LEUKAEMIA
     Dosage: 38MG EVERY TWO WEEKS
     Route: 048
     Dates: start: 20110106
  4. MILURIT [Concomitant]
     Dates: start: 20110106
  5. FENOFIBRATE [Concomitant]
     Dates: start: 20100630

REACTIONS (1)
  - VENOUS THROMBOSIS [None]
